FAERS Safety Report 23105350 (Version 1)
Quarter: 2023Q4

REPORT INFORMATION
  Report Type: Spontaneous
  Country: US (occurrence: US)
  Receive Date: 20231025
  Receipt Date: 20231025
  Transmission Date: 20240110
  Serious: No
  Sender: FDA-Public Use
  Company Number: US-Ipsen Biopharmaceuticals, Inc.-2023-24326

PATIENT

DRUGS (1)
  1. SOMATULINE DEPOT [Suspect]
     Active Substance: LANREOTIDE ACETATE
     Indication: Product used for unknown indication
     Dosage: 60 MG/0.2 ML SYRINGE
     Route: 030

REACTIONS (2)
  - Injection site mass [Not Recovered/Not Resolved]
  - Incorrect route of product administration [Unknown]
